FAERS Safety Report 13360321 (Version 1)
Quarter: 2017Q1

REPORT INFORMATION
  Report Type: Report from Study
  Country: US (occurrence: US)
  Receive Date: 20170322
  Receipt Date: 20170322
  Transmission Date: 20170429
  Serious: No
  Sender: FDA-Public Use
  Company Number: US-009507513-1703USA003071

PATIENT
  Sex: Male

DRUGS (1)
  1. JANUMET [Suspect]
     Active Substance: METFORMIN HYDROCHLORIDE\SITAGLIPTIN PHOSPHATE
     Dosage: 1 TABLET PER DAY (ALSO REPORTED AS 50/100 MG)
     Route: 048

REACTIONS (2)
  - Drug dose omission [Unknown]
  - Product availability issue [Unknown]

NARRATIVE: CASE EVENT DATE: 20170304
